FAERS Safety Report 7804168-6 (Version None)
Quarter: 2011Q4

REPORT INFORMATION
  Report Type: 
  Country: None (occurrence: None)
  Receive Date: 20111010
  Receipt Date: 20110928
  Transmission Date: 20120403
  Serious: Yes (Hospitalization)
  Sender: FDA-Public Use
  Company Number: AT-SANOFI-AVENTIS-2011SA039485

PATIENT
  Age: 53 Year
  Sex: Male
  Weight: 68 kg

DRUGS (4)
  1. OXALIPLATIN [Suspect]
     Route: 042
     Dates: start: 20110601, end: 20110601
  2. CYTARABINE [Concomitant]
     Dates: start: 20110617, end: 20110617
  3. DEXAMETHASONE [Concomitant]
     Dates: start: 20110617, end: 20110621
  4. OXALIPLATIN [Suspect]
     Indication: GASTRIC CANCER
     Route: 042
     Dates: start: 20110328, end: 20110328

REACTIONS (1)
  - METASTASES TO MENINGES [None]
